FAERS Safety Report 17066912 (Version 1)
Quarter: 2019Q4

REPORT INFORMATION
  Report Type: Spontaneous
  Country: CN (occurrence: CN)
  Receive Date: 20191122
  Receipt Date: 20191122
  Transmission Date: 20200122
  Serious: Yes (Other)
  Sender: FDA-Public Use
  Company Number: CN-ASTRAZENECA-2019SF64293

PATIENT
  Age: 54 Year
  Sex: Female
  Weight: 60 kg

DRUGS (2)
  1. IRESSA [Suspect]
     Active Substance: GEFITINIB
     Indication: NON-SMALL CELL LUNG CANCER
     Route: 048
  2. METFORMIN [Concomitant]
     Active Substance: METFORMIN HYDROCHLORIDE
     Dosage: SOMETIMES THE PATIENT WITH HIGH BLOOD GLUCOSE, ATE ONE TABLET AFTER DINNER FOR CONTROLLING BLOOD ...

REACTIONS (8)
  - Diarrhoea [Recovering/Resolving]
  - Drug resistance [Unknown]
  - Hair disorder [Unknown]
  - Malignant neoplasm progression [Unknown]
  - Pruritus [Unknown]
  - Skin atrophy [Unknown]
  - Rash [Unknown]
  - Acne [Unknown]

NARRATIVE: CASE EVENT DATE: 201909
